FAERS Safety Report 4492520-9 (Version None)
Quarter: 2004Q4

REPORT INFORMATION
  Report Type: 
  Country: None (occurrence: None)
  Receive Date: 20041029
  Receipt Date: 20041018
  Transmission Date: 20050328
  Serious: Yes (Death)
  Sender: FDA-Public Use
  Company Number: 2002JP006028

PATIENT
  Age: 34 Year
  Sex: Female
  Weight: 32 kg

DRUGS (3)
  1. PROGRAF [Suspect]
     Indication: BONE MARROW TRANSPLANT
     Dosage: SEE IMAGE
     Route: 048
     Dates: start: 20010614, end: 20010725
  2. PROGRAF [Suspect]
     Indication: BONE MARROW TRANSPLANT
     Dosage: SEE IMAGE
     Route: 048
     Dates: start: 20010726
  3. PREDNISOLONE [Suspect]

REACTIONS (13)
  - CONDITION AGGRAVATED [None]
  - CYTOMEGALOVIRUS INFECTION [None]
  - DERMATITIS BULLOUS [None]
  - DIARRHOEA [None]
  - DISSEMINATED INTRAVASCULAR COAGULATION [None]
  - EPSTEIN-BARR VIRUS INFECTION [None]
  - GRAFT VERSUS HOST DISEASE [None]
  - HEPATOCELLULAR DAMAGE [None]
  - HERPES ZOSTER [None]
  - HUMAN HERPES VIRUS 6 SEROLOGY POSITIVE [None]
  - INTERSTITIAL LUNG DISEASE [None]
  - THROMBOCYTOPENIA [None]
  - VIRAEMIA [None]
